FAERS Safety Report 21423790 (Version 2)
Quarter: 2022Q4

REPORT INFORMATION
  Report Type: Spontaneous
  Country: US (occurrence: US)
  Receive Date: 20221007
  Receipt Date: 20221010
  Transmission Date: 20230113
  Serious: No
  Sender: FDA-Public Use
  Company Number: US-GLAXOSMITHKLINE-USCH2022037123

PATIENT
  Sex: Male

DRUGS (3)
  1. FLONASE [Suspect]
     Active Substance: FLUTICASONE PROPIONATE
     Indication: Eye allergy
     Dosage: UNK
     Dates: end: 202205
  2. FLONASE [Suspect]
     Active Substance: FLUTICASONE PROPIONATE
     Indication: Eye allergy
     Dosage: UNK
     Dates: start: 20221004, end: 20221006
  3. FLONASE [Suspect]
     Active Substance: FLUTICASONE PROPIONATE

REACTIONS (2)
  - Parosmia [Unknown]
  - Dysgeusia [Unknown]
